FAERS Safety Report 5208374-9 (Version None)
Quarter: 2007Q1

REPORT INFORMATION
  Report Type: 
  Country: None (occurrence: None)
  Receive Date: 20070115
  Receipt Date: 20070102
  Transmission Date: 20070707
  Serious: Yes (Hospitalization)
  Sender: FDA-Public Use
  Company Number: DE-ELI_LILLY_AND_COMPANY-DE200611001292

PATIENT
  Age: 30 Year
  Sex: Female
  Weight: 45 kg

DRUGS (11)
  1. CYMBALTA [Suspect]
     Indication: DEPRESSION
     Dosage: 30 MG, DAILY (1/D)
     Route: 048
     Dates: start: 20060421, end: 20060510
  2. CYMBALTA [Suspect]
     Dosage: 60 MG, DAILY (1/D)
     Route: 048
     Dates: start: 20060511, end: 20060816
  3. VALORON [Concomitant]
     Dosage: 100 MG, DAILY (1/D)
     Route: 048
     Dates: start: 20060408, end: 20060511
  4. VALORON [Concomitant]
     Dosage: 150 MG, DAILY (1/D)
     Route: 048
     Dates: start: 20060512, end: 20060616
  5. VALORON [Concomitant]
     Dosage: 200 MG, DAILY (1/D)
     Route: 048
     Dates: start: 20060617
  6. NEXIUM [Concomitant]
     Dosage: 40 MG, DAILY (1/D)
     Route: 048
     Dates: start: 20060408
  7. ZOLIM [Concomitant]
     Dosage: 10 MG, DAILY (1/D)
     Route: 048
     Dates: start: 20060602
  8. CETIRIZINE HCL [Concomitant]
     Dosage: 20 MG, DAILY (1/D)
     Route: 048
     Dates: start: 20060616
  9. MOVICOL [Concomitant]
     Dosage: UNK, 3/D
     Route: 048
     Dates: start: 20060408, end: 20060623
  10. MOVICOL [Concomitant]
     Dosage: UNK, 4/D
     Route: 048
     Dates: start: 20060624
  11. IMAP [Concomitant]
     Dosage: 1.5 MG, UNK
     Route: 030
     Dates: start: 20060705, end: 20060705

REACTIONS (4)
  - BLOOD PROLACTIN INCREASED [None]
  - BREAST DISCOMFORT [None]
  - DRUG INTERACTION [None]
  - GALACTORRHOEA [None]
